FAERS Safety Report 8927967 (Version 2)
Quarter: 2012Q4

REPORT INFORMATION
  Report Type: Spontaneous
  Country: US (occurrence: None)
  Receive Date: 20121119
  Receipt Date: 20121127
  Transmission Date: 20130627
  Serious: Yes (Other)
  Sender: FDA-Public Use
  Company Number: KAD201211-000491

PATIENT
  Age: 55 Year
  Sex: Male

DRUGS (3)
  1. RIBAVIRIN [Suspect]
     Indication: HEPATITIS C
  2. INTERFERON ALFACON-1 [Suspect]
     Indication: HEPATITIS C
  3. PEG INTERFERON [Suspect]

REACTIONS (1)
  - Systemic lupus erythematosus [None]
